FAERS Safety Report 13054482 (Version 2)
Quarter: 2019Q4

REPORT INFORMATION
  Report Type: Spontaneous
  Country: FR (occurrence: FR)
  Receive Date: 20161222
  Receipt Date: 20191019
  Transmission Date: 20200122
  Serious: Yes (Other)
  Sender: FDA-Public Use
  Company Number: FR-TEVA-721270ROM

PATIENT
  Age: 28 Year
  Sex: Female

DRUGS (1)
  1. LEELOO 0.1 MG/0.02 MG [Suspect]
     Active Substance: ETHINYL ESTRADIOL\LEVONORGESTREL
     Dosage: 1 DOSAGE FORMS DAILY; 1 DOSAGE FORM= 0.02 ETHINYLESTRADIOL + 0.1 MG LEVONORGESTREL; 1DOSAGE FORMS PE
     Route: 048
     Dates: start: 201607, end: 2016

REACTIONS (4)
  - Drug ineffective [Recovered/Resolved]
  - Pregnancy on oral contraceptive [Unknown]
  - Maternal exposure during pregnancy [Unknown]
  - Abortion induced [Unknown]

NARRATIVE: CASE EVENT DATE: 20161129
